FAERS Safety Report 9589320 (Version 1)
Quarter: 2013Q4

REPORT INFORMATION
  Report Type: Spontaneous
  Country: US (occurrence: US)
  Receive Date: 20131003
  Receipt Date: 20131003
  Transmission Date: 20140711
  Serious: No
  Sender: FDA-Public Use
  Company Number: US-AMGEN-USASP2012069562

PATIENT
  Age: 44 Year
  Sex: Female
  Weight: 77.1 kg

DRUGS (9)
  1. ENBREL [Suspect]
     Indication: PRODUCT USED FOR UNKNOWN INDICATION
     Dosage: 50 MG, QWK
     Route: 058
  2. CELEXA                             /00582602/ [Concomitant]
     Dosage: 10 MG, UNK
  3. KLONOPIN [Concomitant]
     Dosage: 0.5 MG, UNK
  4. VESICARE [Concomitant]
     Dosage: 10 MG, UNK
  5. OMEPRAZOLE [Concomitant]
     Dosage: 10 MG, UNK
  6. VITAMIN D                          /00107901/ [Concomitant]
     Dosage: 1000 UNIT, UNK
  7. RESTASIS [Concomitant]
     Dosage: 0.05 %, UNK
  8. VITAMIN B12                        /00056201/ [Concomitant]
     Dosage: 1000 UNK, UNK
  9. SELEGILINE [Concomitant]
     Dosage: 5 MG, UNK

REACTIONS (2)
  - Injection site swelling [Unknown]
  - Injection site erythema [Unknown]
